FAERS Safety Report 7898959-3 (Version None)
Quarter: 2011Q4

REPORT INFORMATION
  Report Type: 
  Country: None (occurrence: None)
  Receive Date: 20111107
  Receipt Date: 20111028
  Transmission Date: 20120403
  Serious: Yes (Hospitalization)
  Sender: FDA-Public Use
  Company Number: JP-ASTELLAS-2011JP007842

PATIENT
  Age: 70 Year
  Sex: Male

DRUGS (6)
  1. PROGRAF [Suspect]
     Indication: POLYCHONDRITIS
     Route: 065
  2. PREDNISOLONE [Concomitant]
     Route: 065
  3. PROGRAF [Suspect]
     Indication: HISTIOCYTOSIS HAEMATOPHAGIC
  4. BETAMETHASONE [Concomitant]
     Indication: HISTIOCYTOSIS HAEMATOPHAGIC
  5. PREDNISOLONE [Concomitant]
     Indication: POLYCHONDRITIS
     Dosage: 20 MG, UNKNOWN/D
     Route: 065
  6. CYCLOPHOSPHAMIDE [Concomitant]
     Indication: POLYCHONDRITIS
     Route: 065

REACTIONS (2)
  - OFF LABEL USE [None]
  - ATYPICAL MYCOBACTERIAL INFECTION [None]
